FAERS Safety Report 13562826 (Version 1)
Quarter: 2017Q2

REPORT INFORMATION
  Report Type: Spontaneous
  Country: US (occurrence: US)
  Receive Date: 20170519
  Receipt Date: 20170519
  Transmission Date: 20170830
  Serious: No
  Sender: FDA-Public Use
  Company Number: US-JNJFOC-20170309588

PATIENT
  Age: 46 Year
  Sex: Female
  Weight: 49.9 kg

DRUGS (1)
  1. SUDAFED [Suspect]
     Active Substance: PSEUDOEPHEDRINE HYDROCHLORIDE
     Indication: VIRAL UPPER RESPIRATORY TRACT INFECTION
     Dosage: 1/2 TABLET
     Route: 048

REACTIONS (2)
  - Incorrect dose administered [Unknown]
  - Wrong technique in product usage process [None]
